FAERS Safety Report 4498391-9 (Version None)
Quarter: 2004Q4

REPORT INFORMATION
  Report Type: 
  Country: None (occurrence: None)
  Receive Date: 20041105
  Receipt Date: 20041027
  Transmission Date: 20050328
  Serious: Yes (Death, Hospitalization, Other)
  Sender: FDA-Public Use
  Company Number: 2004-10-0392

PATIENT
  Age: 56 Year
  Sex: Male
  Weight: 58 kg

DRUGS (8)
  1. TEMODAL [Suspect]
     Indication: GLIOMA
     Dosage: 345 MG QD ORAL
     Route: 048
     Dates: start: 20040823, end: 20040827
  2. OGAST [Concomitant]
  3. IMOVANE [Concomitant]
  4. PREDNISOLONE [Concomitant]
  5. PREDNISOLONE [Concomitant]
  6. DEPAKINE CHRONO (SODIUM VALPROATE) [Concomitant]
  7. FRAXIPARINE [Concomitant]
  8. RADIATION THERAPY [Concomitant]

REACTIONS (6)
  - BONE MARROW DEPRESSION [None]
  - CEREBRAL HAEMORRHAGE [None]
  - DEEP VEIN THROMBOSIS [None]
  - INTRACRANIAL PRESSURE INCREASED [None]
  - LOSS OF CONSCIOUSNESS [None]
  - PNEUMONIA PNEUMOCOCCAL [None]
